FAERS Safety Report 5536546-2 (Version None)
Quarter: 2007Q4

REPORT INFORMATION
  Report Type: 
  Country: None (occurrence: None)
  Receive Date: 20071204
  Receipt Date: 20071121
  Transmission Date: 20080405
  Serious: Yes (Hospitalization)
  Sender: FDA-Public Use
  Company Number: GXKR2007CH10024

PATIENT
  Age: 17 Year
  Sex: Male

DRUGS (6)
  1. RISPERIDONE [Suspect]
     Dosage: 50 MG, BIW, INTRAMUSCULAR; 3 MG, QD, ORAL
     Route: 030
     Dates: end: 20041201
  2. RISPERIDONE [Suspect]
     Dosage: 50 MG, BIW, INTRAMUSCULAR; 3 MG, QD, ORAL
     Route: 030
     Dates: end: 20041201
  3. SERTRALINE [Suspect]
     Dosage: 100 MG, QD; 50 MG, QD; 100 MG, QD
  4. OLANZAPINE [Suspect]
     Dosage: 10 MG, QD; 15 MG, QD; 20 MG, QD
  5. OLANZAPINE [Suspect]
     Dosage: 10 MG, QD; 15 MG, QD; 20 MG, QD
     Dates: start: 20041201
  6. BIPERIDEN HYDROCHLORIDE TAB [Concomitant]

REACTIONS (14)
  - AGITATION [None]
  - AKATHISIA [None]
  - BLEPHAROSPASM [None]
  - CONJUNCTIVITIS [None]
  - DRUG INEFFECTIVE [None]
  - DRY EYE [None]
  - DYSPEPSIA [None]
  - EXTRAPYRAMIDAL DISORDER [None]
  - FEELING ABNORMAL [None]
  - MUSCLE SPASMS [None]
  - RESTLESSNESS [None]
  - TENSION [None]
  - TREATMENT NONCOMPLIANCE [None]
  - TREMOR [None]
